FAERS Safety Report 7457179-7 (Version None)
Quarter: 2011Q2

REPORT INFORMATION
  Report Type: 
  Country: None (occurrence: None)
  Receive Date: 20110504
  Receipt Date: 20110419
  Transmission Date: 20111010
  Serious: Yes (Life-Threatening, Hospitalization)
  Sender: FDA-Public Use
  Company Number: US-JNJFOC-20110411555

PATIENT
  Age: 33 Year
  Sex: Male

DRUGS (6)
  1. LISINOPRIL [Concomitant]
     Route: 065
  2. DURAGESIC [Suspect]
     Indication: PRODUCT USED FOR UNKNOWN INDICATION
     Route: 048
  3. OXYCODONE/ACETAMINOPHEN [Suspect]
     Indication: PRODUCT USED FOR UNKNOWN INDICATION
     Route: 065
  4. BENZODIAZEPINE NOS [Suspect]
     Indication: PRODUCT USED FOR UNKNOWN INDICATION
     Route: 065
  5. SSRI [Concomitant]
     Route: 065
  6. VICODIN [Suspect]
     Indication: PRODUCT USED FOR UNKNOWN INDICATION
     Route: 065

REACTIONS (10)
  - RESPIRATORY DEPRESSION [None]
  - CYANOSIS [None]
  - HYPERTENSION [None]
  - TACHYCARDIA [None]
  - UNRESPONSIVE TO STIMULI [None]
  - ASPARTATE AMINOTRANSFERASE INCREASED [None]
  - MULTIPLE DRUG OVERDOSE [None]
  - AGGRESSION [None]
  - TOXICITY TO VARIOUS AGENTS [None]
  - INTENTIONAL DRUG MISUSE [None]
